FAERS Safety Report 9198742 (Version 2)
Quarter: 2013Q2

REPORT INFORMATION
  Report Type: Spontaneous
  Country: US (occurrence: US)
  Receive Date: 20130329
  Receipt Date: 20130501
  Transmission Date: 20140414
  Serious: Yes (Hospitalization, Other)
  Sender: FDA-Public Use
  Company Number: US-PFIZER INC-2013101641

PATIENT
  Age: 52 Year
  Sex: Female
  Weight: 82.99 kg

DRUGS (9)
  1. CHANTIX [Suspect]
     Indication: SMOKING CESSATION THERAPY
     Dosage: UNK
     Dates: start: 2008
  2. CHANTIX [Suspect]
     Dosage: UNK
     Dates: start: 2010
  3. CHANTIX [Suspect]
     Dosage: 0.5 DF, 1X/DAY
     Dates: start: 2011, end: 2011
  4. CHANTIX [Suspect]
     Dosage: 0.5 DF, 2X/DAY
     Dates: start: 2011, end: 2011
  5. CHANTIX [Suspect]
     Dosage: 1 DF, 1X/DAY
     Dates: start: 2011, end: 2011
  6. CHANTIX [Suspect]
     Dosage: 1 DF, 2X/DAY
     Dates: start: 2011, end: 2011
  7. XANAX [Suspect]
     Indication: ANXIETY
     Dosage: 1 MG IN MORNING, 0.25 MG OR HALF TABLET OF 1 MG IN NOON AND 1 MG IN NIGHT
  8. XANAX [Suspect]
     Indication: PANIC ATTACK
  9. CYMBALTA [Concomitant]
     Indication: DEPRESSION
     Dosage: 30 MG DAILY

REACTIONS (3)
  - Lipoma [Unknown]
  - Gallbladder disorder [Unknown]
  - Accident [Unknown]
